FAERS Safety Report 21061815 (Version 2)
Quarter: 2022Q3

REPORT INFORMATION
  Report Type: Spontaneous
  Country: US (occurrence: US)
  Receive Date: 20220710
  Receipt Date: 20220726
  Transmission Date: 20221027
  Serious: No
  Sender: FDA-Public Use
  Company Number: US-TEVA-2022-US-2047281

PATIENT
  Age: 83 Year
  Sex: Female

DRUGS (2)
  1. AUSTEDO [Suspect]
     Active Substance: DEUTETRABENAZINE
     Indication: Tardive dyskinesia
     Dosage: 6 MILLIGRAM DAILY;
     Route: 048
     Dates: start: 2022
  2. AUSTEDO [Suspect]
     Active Substance: DEUTETRABENAZINE
     Dosage: 9 MILLIGRAM DAILY;
     Route: 048
     Dates: start: 2022

REACTIONS (3)
  - Oral pain [Unknown]
  - Dyskinesia [Unknown]
  - Anxiety [Unknown]

NARRATIVE: CASE EVENT DATE: 20220101
